FAERS Safety Report 8918071 (Version 1)
Quarter: 2012Q4

REPORT INFORMATION
  Report Type: 
  Country: US (occurrence: US)
  Receive Date: 20121120
  Receipt Date: 20121120
  Transmission Date: 20130627
  Serious: No
  Sender: FDA-Public Use
  Company Number: US-ASTRAZENECA-2012SE14507

PATIENT
  Age: 3 Month
  Sex: Female
  Weight: 5 kg

DRUGS (2)
  1. NEXIUM [Suspect]
     Indication: GASTROOESOPHAGEAL REFLUX DISEASE
     Dosage: 40 MG/ 20 ML WATER, TOTAL DAILY DOSE: 40 MG.
     Route: 048
     Dates: start: 20120227
  2. ZEGERID [Concomitant]

REACTIONS (3)
  - Vomiting projectile [Unknown]
  - Gastrooesophageal reflux disease [Unknown]
  - Poor quality drug administered [Unknown]
